FAERS Safety Report 18103358 (Version 1)
Quarter: 2020Q3

REPORT INFORMATION
  Report Type: Spontaneous
  Country: US (occurrence: US)
  Receive Date: 20200731
  Receipt Date: 20200731
  Transmission Date: 20201103
  Serious: No
  Sender: FDA-Public Use
  Company Number: None

PATIENT
  Age: 64 Year
  Sex: Female

DRUGS (1)
  1. COSENTYX [Suspect]
     Active Substance: SECUKINUMAB
     Indication: PSORIASIS
     Dosage: INJECT 300MG (2 SYRINGES) SUBCUTANEOUSLY  EVERY  WEEK  FOR 5 WEEKS  AS DIRECT
     Route: 058
     Dates: start: 202002

REACTIONS (2)
  - Therapy cessation [None]
  - Infection [None]
